FAERS Safety Report 12376554 (Version 1)
Quarter: 2016Q2

REPORT INFORMATION
  Report Type: Spontaneous
  Country: US (occurrence: US)
  Receive Date: 20160517
  Receipt Date: 20160517
  Transmission Date: 20160815
  Serious: No
  Sender: FDA-Public Use
  Company Number: US-RELYPSA-RLY2016000142

PATIENT

DRUGS (16)
  1. COLACE (CLEAR) [Concomitant]
  2. LASIX [Concomitant]
     Active Substance: FUROSEMIDE
  3. NPH INSULIN [Concomitant]
     Active Substance: INSULIN BEEF
  4. GLUCOSAMINE CHONDROITIN COMPLEX    /06278301/ [Concomitant]
  5. ASPIR 81 [Concomitant]
  6. VELTASSA [Suspect]
     Active Substance: PATIROMER
     Indication: HYPERKALAEMIA
     Dosage: 8.4 G, QD
     Route: 048
     Dates: start: 201602
  7. ALLOPURINOL. [Concomitant]
     Active Substance: ALLOPURINOL
  8. CALCIUM 500+D [Concomitant]
     Active Substance: CALCIUM\VITAMIN D
  9. FERROUS SULFATE. [Concomitant]
     Active Substance: FERROUS SULFATE
  10. FISH OIL [Concomitant]
     Active Substance: FISH OIL
  11. LISINOPRIL. [Concomitant]
     Active Substance: LISINOPRIL
  12. SODIUM BICARBONATE. [Concomitant]
     Active Substance: SODIUM BICARBONATE
  13. NOVOLOG [Concomitant]
     Active Substance: INSULIN ASPART
  14. CRESTOR [Concomitant]
     Active Substance: ROSUVASTATIN CALCIUM
  15. PEPCID                             /00305201/ [Concomitant]
     Active Substance: ALUMINUM HYDROXIDE\MAGNESIUM CARBONATE
  16. COUMADIN [Concomitant]
     Active Substance: WARFARIN SODIUM

REACTIONS (2)
  - Blood magnesium decreased [Unknown]
  - Fatigue [Unknown]

NARRATIVE: CASE EVENT DATE: 201602
